FAERS Safety Report 22390649 (Version 2)
Quarter: 2023Q4

REPORT INFORMATION
  Report Type: Report from Study
  Country: IT (occurrence: IT)
  Receive Date: 20230531
  Receipt Date: 20231108
  Transmission Date: 20240110
  Serious: Yes (Hospitalization)
  Sender: FDA-Public Use
  Company Number: IT-INCYTE CORPORATION-2022IN012126

PATIENT
  Age: 61 Year
  Sex: Male
  Weight: 76 kg

DRUGS (3)
  1. TAFASITAMAB [Suspect]
     Active Substance: TAFASITAMAB
     Indication: Follicular lymphoma
     Dosage: 12 MILLIGRAM/KILOGRAM (996 MG) (WEEKLY FOR CYCLES 1 TO 3 THEN DAYS 1 AND 15 OF EACH 28-DAY CYCLE FRO
     Route: 042
     Dates: start: 20220908, end: 20221201
  2. PARSACLISIB [Suspect]
     Active Substance: PARSACLISIB
     Indication: Follicular lymphoma
     Dosage: 20 MILLIGRAM, QD
     Route: 048
     Dates: start: 20220908, end: 20221102
  3. PARSACLISIB [Suspect]
     Active Substance: PARSACLISIB
     Dosage: 2.5 MILLIGRAM
     Route: 048
     Dates: start: 20221103, end: 20221205

REACTIONS (1)
  - Gastroenteritis [Recovered/Resolved]

NARRATIVE: CASE EVENT DATE: 20221209
